FAERS Safety Report 8377621-7 (Version None)
Quarter: 2012Q2

REPORT INFORMATION
  Report Type: 
  Country: None (occurrence: None)
  Receive Date: 20120522
  Receipt Date: 20120516
  Transmission Date: 20120825
  Serious: Yes (Congenital Anomaly, Other)
  Sender: FDA-Public Use
  Company Number: US-PFIZER INC-2011270396

PATIENT
  Sex: Female

DRUGS (11)
  1. ZOLOFT [Suspect]
     Dosage: 100 MG, 1X/DAY (EVERY MORNING)
     Route: 064
     Dates: start: 20040908
  2. TRILEPTAL [Concomitant]
     Dosage: 300 MG, 2X/DAY
     Route: 064
     Dates: start: 20060606
  3. PROMETHAZINE [Concomitant]
     Dosage: 25 MG, EVERY 6 HOURS
     Route: 064
     Dates: start: 20060718
  4. TRILEPTAL [Concomitant]
     Dosage: 600 MG, 2X/DAY
     Route: 064
     Dates: start: 20060117
  5. AVIANE-28 [Concomitant]
     Dosage: UNK
     Route: 064
     Dates: start: 20060213
  6. EPIPEN [Concomitant]
     Dosage: 0.3 MG, UNK
     Route: 064
     Dates: start: 20060524
  7. ZOVIA 1/35E-21 [Concomitant]
     Dosage: 1/50 ONCE DAILY
     Route: 064
     Dates: start: 20060221
  8. PENICILLIN VK [Concomitant]
     Dosage: 500 MG, 4X/DAY
     Route: 064
     Dates: start: 20060409
  9. FOLIC ACID [Concomitant]
     Dosage: 1 MG, 1X/DAY
     Route: 064
     Dates: start: 20060224
  10. OMNICEF [Concomitant]
     Dosage: 300 MG, DAILY
     Route: 064
     Dates: start: 20060502
  11. ZOLOFT [Suspect]
     Dosage: UNK
     Route: 064
     Dates: start: 20051101, end: 20060901

REACTIONS (4)
  - MATERNAL EXPOSURE TIMING UNSPECIFIED [None]
  - ATRIAL SEPTAL DEFECT [None]
  - HEART DISEASE CONGENITAL [None]
  - PULMONARY VALVE STENOSIS CONGENITAL [None]
